FAERS Safety Report 24985495 (Version 1)
Quarter: 2025Q1

REPORT INFORMATION
  Report Type: Spontaneous
  Country: US (occurrence: None)
  Receive Date: 20250219
  Receipt Date: 20250219
  Transmission Date: 20250409
  Serious: Yes (Hospitalization)
  Sender: FDA-CTU
  Company Number: None

PATIENT
  Age: 56 Year
  Sex: Male
  Weight: 89 kg

DRUGS (5)
  1. FLUOROURACIL [Suspect]
     Active Substance: FLUOROURACIL
     Dates: end: 20250210
  2. CAPECITABINE [Suspect]
     Active Substance: CAPECITABINE
     Dates: end: 20241007
  3. IRINOTECAN [Suspect]
     Active Substance: IRINOTECAN
     Dates: end: 20250210
  4. LEUCOVORIN CALCIUM [Suspect]
     Active Substance: LEUCOVORIN CALCIUM
     Dates: end: 20250210
  5. OXALIPLATIN [Suspect]
     Active Substance: OXALIPLATIN
     Dates: start: 20250210, end: 20250210

REACTIONS (4)
  - Tachycardia [None]
  - Pyrexia [None]
  - Chills [None]
  - White blood cell count decreased [None]

NARRATIVE: CASE EVENT DATE: 20250214
